FAERS Safety Report 6065760-5 (Version None)
Quarter: 2009Q1

REPORT INFORMATION
  Report Type: 
  Country: None (occurrence: None)
  Receive Date: 20090202
  Receipt Date: 20090127
  Transmission Date: 20090719
  Serious: Yes (Death)
  Sender: FDA-Public Use
  Company Number: 2009-190160-NL

PATIENT
  Age: 38 Year
  Sex: Female
  Weight: 101.6 kg

DRUGS (7)
  1. NUVARING [Suspect]
     Dates: start: 20070101, end: 20081201
  2. KLONOPIN [Concomitant]
  3. LAMICTAL ^BURROUGHS WELLCOME^ [Concomitant]
  4. LUNESTA [Concomitant]
  5. PROTONIX [Concomitant]
  6. MULTI-VITAMINS [Concomitant]
  7. CARAFATE [Concomitant]

REACTIONS (2)
  - COMPLICATION OF DEVICE INSERTION [None]
  - PULMONARY EMBOLISM [None]
